FAERS Safety Report 5690242-X (Version None)
Quarter: 2008Q2

REPORT INFORMATION
  Report Type: 
  Country: None (occurrence: None)
  Receive Date: 20080401
  Receipt Date: 20080320
  Transmission Date: 20081010
  Serious: Yes (Other)
  Sender: FDA-Public Use
  Company Number: HQWYE895513JUL06

PATIENT
  Sex: Female

DRUGS (1)
  1. PREMPRO [Suspect]
     Dosage: UNKNOWN, 96 MOS. (8 YEARS)
     Dates: start: 19920101, end: 20000101

REACTIONS (1)
  - BREAST CANCER METASTATIC [None]
